FAERS Safety Report 15255711 (Version 18)
Quarter: 2025Q1

REPORT INFORMATION
  Report Type: Spontaneous
  Country: US (occurrence: US)
  Receive Date: 20180808
  Receipt Date: 20250312
  Transmission Date: 20250409
  Serious: Yes (Hospitalization, Other)
  Sender: PFIZER
  Company Number: US-PFIZER INC-2018315250

PATIENT
  Age: 68 Year
  Sex: Male
  Weight: 90.72 kg

DRUGS (32)
  1. BOSULIF [Suspect]
     Active Substance: BOSUTINIB MONOHYDRATE
     Indication: Chronic myeloid leukaemia
     Dates: start: 2016
  2. BOSULIF [Suspect]
     Active Substance: BOSUTINIB MONOHYDRATE
     Dosage: 400 MG, DAILY
     Dates: start: 20180624
  3. BOSULIF [Suspect]
     Active Substance: BOSUTINIB MONOHYDRATE
     Dosage: 400 MG, 1X/DAY
     Route: 048
  4. BOSULIF [Suspect]
     Active Substance: BOSUTINIB MONOHYDRATE
     Dosage: 400 MG, 1X/DAY
     Route: 048
     Dates: start: 201806
  5. BOSULIF [Suspect]
     Active Substance: BOSUTINIB MONOHYDRATE
     Dosage: 400 MG, DAILY
     Route: 048
  6. BOSULIF [Suspect]
     Active Substance: BOSUTINIB MONOHYDRATE
     Dosage: 300 MG, DAILY (TAKE 3 TABLETS BY MOUTH DAILY. TAKE WITH FOOD)
     Route: 048
  7. BOSULIF [Suspect]
     Active Substance: BOSUTINIB MONOHYDRATE
     Dosage: 400 MG, DAILY
  8. BOSULIF [Suspect]
     Active Substance: BOSUTINIB MONOHYDRATE
     Dosage: TAKE 3 TABLETS BY MOUTH DAILY/300 MG DAILY
     Route: 048
     Dates: start: 202203, end: 20230329
  9. BOSULIF [Suspect]
     Active Substance: BOSUTINIB MONOHYDRATE
     Dosage: TAKE 3 TABLETS BY MOUTH DAILY. TAKE WITH FOOD/300 MG DAILY
     Route: 048
     Dates: start: 20230824
  10. ROSUVASTATIN CALCIUM [Concomitant]
     Active Substance: ROSUVASTATIN CALCIUM
     Indication: Hyperlipidaemia
     Dosage: 40 MG, 1X/DAY (EVERY EVENING)
  11. TRAVATAN Z [Concomitant]
     Active Substance: TRAVOPROST
     Indication: Glaucoma
     Dosage: 1 GTT (IN EACH EYE), 1X/DAY (IN THE EVENING)
  12. ONDANSETRON HYDROCHLORIDE [Concomitant]
     Active Substance: ONDANSETRON HYDROCHLORIDE
  13. TRAVOPROST 1 A PHARMA [Concomitant]
  14. LOSARTAN POTASSIUM [Concomitant]
     Active Substance: LOSARTAN POTASSIUM
  15. METRONIDAZOLE [Concomitant]
     Active Substance: METRONIDAZOLE
     Dosage: UNK, WEEKLY
     Route: 061
  16. NORVASC [Concomitant]
     Active Substance: AMLODIPINE BESYLATE
  17. ERYTHROCIN STEARATE [Concomitant]
     Active Substance: ERYTHROMYCIN STEARATE
  18. DICYCLOMINE HYDROCHLORIDE [Concomitant]
     Active Substance: DICYCLOMINE HYDROCHLORIDE
  19. FLUOROURACIL [Concomitant]
     Active Substance: FLUOROURACIL
  20. TRIAMCINOLONE ACETONIDE [Concomitant]
     Active Substance: TRIAMCINOLONE ACETONIDE
  21. CELECOXIB [Concomitant]
     Active Substance: CELECOXIB
  22. FAMOTIDINE [Concomitant]
     Active Substance: FAMOTIDINE
  23. TRAMADOL [Concomitant]
     Active Substance: TRAMADOL
  24. PROCHLORPERAZINE EDISYLATE [Concomitant]
     Active Substance: PROCHLORPERAZINE EDISYLATE
  25. CLINDAMYCIN [Concomitant]
     Active Substance: CLINDAMYCIN
  26. BENZOYL PEROXIDE [Concomitant]
     Active Substance: BENZOYL PEROXIDE
  27. CLARITIN-D NOS [Concomitant]
     Active Substance: LORATADINE\PSEUDOEPHEDRINE SULFATE
  28. CRESTOR [Concomitant]
     Active Substance: ROSUVASTATIN CALCIUM
  29. MAXZIDE [Concomitant]
     Active Substance: HYDROCHLOROTHIAZIDE\TRIAMTERENE
  30. PROCHLORPERAZINE EDISYLATE [Concomitant]
     Active Substance: PROCHLORPERAZINE EDISYLATE
  31. GABAPENTIN [Concomitant]
     Active Substance: GABAPENTIN
  32. FLUTICASONE FUROATE\VILANTEROL TRIFENATATE [Concomitant]
     Active Substance: FLUTICASONE FUROATE\VILANTEROL TRIFENATATE

REACTIONS (41)
  - Illness [Unknown]
  - Pneumonia [Unknown]
  - Sepsis [Unknown]
  - Dehydration [Unknown]
  - Diarrhoea [Unknown]
  - Loss of consciousness [Unknown]
  - Dementia [Not Recovered/Not Resolved]
  - Influenza [Unknown]
  - Fall [Unknown]
  - Dizziness [Unknown]
  - Vertigo positional [Unknown]
  - Asthenia [Unknown]
  - Respiratory tract infection [Unknown]
  - Chylothorax [Unknown]
  - Clostridium difficile infection [Unknown]
  - Crohn^s disease [Not Recovered/Not Resolved]
  - Internal haemorrhage [Unknown]
  - Gastric haemorrhage [Unknown]
  - Anaemia [Unknown]
  - Gastritis [Unknown]
  - Epigastric discomfort [Unknown]
  - Tooth abscess [Recovered/Resolved]
  - Pleural effusion [Unknown]
  - Chronic myeloid leukaemia recurrent [Unknown]
  - Cytogenetic analysis abnormal [Not Recovered/Not Resolved]
  - Infection [Unknown]
  - Headache [Recovering/Resolving]
  - Influenza like illness [Unknown]
  - Myalgia [Unknown]
  - Constipation [Unknown]
  - Abdominal discomfort [Unknown]
  - Inflammation [Unknown]
  - Fatigue [Not Recovered/Not Resolved]
  - Weight decreased [Unknown]
  - Arthralgia [Unknown]
  - Muscle spasms [Unknown]
  - Dysuria [Unknown]
  - Back pain [Unknown]
  - Dyspnoea [Unknown]
  - Nausea [Unknown]
  - Product dose omission in error [Not Recovered/Not Resolved]

NARRATIVE: CASE EVENT DATE: 20180420
